FAERS Safety Report 25198278 (Version 1)
Quarter: 2025Q2

REPORT INFORMATION
  Report Type: Spontaneous
  Country: US (occurrence: None)
  Receive Date: 20250414
  Receipt Date: 20250414
  Transmission Date: 20250717
  Serious: Yes (Hospitalization)
  Sender: FDA-CTU
  Company Number: None

PATIENT
  Age: 63 Year
  Sex: Female
  Weight: 88.65 kg

DRUGS (2)
  1. ZEPBOUND [Suspect]
     Active Substance: TIRZEPATIDE
     Indication: Obesity
     Route: 058
     Dates: start: 20250107, end: 20250401
  2. ZEPBOUND [Suspect]
     Active Substance: TIRZEPATIDE
     Indication: Body mass index abnormal

REACTIONS (4)
  - Abdominal pain [None]
  - Rectal haemorrhage [None]
  - Colitis ischaemic [None]
  - Therapy cessation [None]

NARRATIVE: CASE EVENT DATE: 20250401
